FAERS Safety Report 17468110 (Version 3)
Quarter: 2020Q1

REPORT INFORMATION
  Report Type: Spontaneous
  Country: GB (occurrence: GB)
  Receive Date: 20200227
  Receipt Date: 20200323
  Transmission Date: 20200409
  Serious: Yes (Other)
  Sender: FDA-Public Use
  Company Number: GB-PFIZER INC-2020080857

PATIENT
  Age: 90 Year
  Sex: Female

DRUGS (5)
  1. ATORVASTATIN CALCIUM. [Suspect]
     Active Substance: ATORVASTATIN CALCIUM
     Indication: TRANSIENT ISCHAEMIC ATTACK
     Dosage: 40 MG, 1X/DAY (STARTED IN TIA CLINIC FOLLOW-UP APPOINTMENT) (CEASED ON DAY 151)
  2. NIFEDIPINE. [Interacting]
     Active Substance: NIFEDIPINE
     Indication: TRANSIENT ISCHAEMIC ATTACK
     Dosage: 10 MG, 1X/DAY
  3. CLOPIDOGREL [Interacting]
     Active Substance: CLOPIDOGREL BISULFATE
     Indication: TRANSIENT ISCHAEMIC ATTACK
     Dosage: 75 MG, 1X/DAY (STARTED FOLLOWING TIA CLINIC APPOINTMENT ON DAY 20)
  4. ASPIRIN [ACETYLSALICYLIC ACID] [Concomitant]
     Active Substance: ASPIRIN
     Dosage: 75 MG, 1X/DAY (BETWEEN DAY 1 AND DAY 20)
  5. ASPIRIN [ACETYLSALICYLIC ACID] [Concomitant]
     Active Substance: ASPIRIN
     Indication: TRANSIENT ISCHAEMIC ATTACK
     Dosage: 300 MG, UNK  (ON DAY 0)

REACTIONS (2)
  - Drug interaction [Recovered/Resolved]
  - Drug-induced liver injury [Recovered/Resolved]
